FAERS Safety Report 8105071-7 (Version None)
Quarter: 2012Q1

REPORT INFORMATION
  Report Type: 
  Country: None (occurrence: None)
  Receive Date: 20120201
  Receipt Date: 20120123
  Transmission Date: 20120608
  Serious: Yes (Life-Threatening, Hospitalization)
  Sender: FDA-Public Use
  Company Number: US-BAYER-2011-049529

PATIENT
  Age: 49 Year
  Sex: Female
  Weight: 129.71 kg

DRUGS (18)
  1. YASMIN [Suspect]
     Indication: CONTRACEPTION
     Dosage: UNK
     Dates: start: 20070127, end: 20090616
  2. TYLENOL-500 [Concomitant]
     Indication: ARTHRALGIA
  3. YASMIN [Suspect]
     Indication: MENSTRUATION IRREGULAR
     Dosage: UNK
     Dates: start: 20070127, end: 20090616
  4. NAPROSYN [Concomitant]
     Dosage: UNK UNK, PRN
  5. ZYRTEC [Concomitant]
     Indication: SEASONAL ALLERGY
  6. ZOLPIDEM TARTRATE [Concomitant]
  7. PHENAZOPYRIDINE HCL TAB [Concomitant]
     Indication: URINARY TRACT INFECTION
     Dosage: UNK UNK, PRN
     Dates: start: 20090601
  8. SERTRALINE HYDROCHLORIDE [Concomitant]
     Dosage: 10 MG, DAILY
     Route: 002
  9. BENADRYL [Concomitant]
     Dosage: UNK UNK, PRN
  10. NAPROXEN (ALEVE) [Concomitant]
     Dosage: UNK UNK, QON
  11. AMITRIPTYLINE HCL [Concomitant]
     Indication: SLEEP DISORDER
     Dosage: 10 MG, HS
     Dates: start: 20081205
  12. AMITRIPTYLINE HCL [Concomitant]
     Indication: DEPRESSION
  13. AMITRIPTYLINE HCL [Concomitant]
     Indication: ANXIETY
  14. YASMIN [Suspect]
     Indication: MENORRHAGIA
  15. PROVENTIL [Concomitant]
     Dosage: UNK UNK, PRN
  16. HYDROXYZINE [Concomitant]
     Dosage: UNK
     Dates: start: 20090601
  17. CIPROFLOXACIN [Concomitant]
     Indication: PHARYNGITIS STREPTOCOCCAL
     Dosage: UNK UNK, PRN
     Dates: start: 20090601
  18. AMBIEN [Concomitant]
     Dosage: 10 MG, DAILY

REACTIONS (14)
  - ANXIETY [None]
  - PAIN IN EXTREMITY [None]
  - PLEURISY [None]
  - PULMONARY EMBOLISM [None]
  - VEIN DISORDER [None]
  - LUNG DISORDER [None]
  - GENERAL PHYSICAL HEALTH DETERIORATION [None]
  - JOINT SWELLING [None]
  - DYSPNOEA [None]
  - DEEP VEIN THROMBOSIS [None]
  - EMOTIONAL DISTRESS [None]
  - ERYTHEMA [None]
  - VENOUS THROMBOSIS [None]
  - PAIN [None]
